FAERS Safety Report 6062839-9 (Version None)
Quarter: 2009Q1

REPORT INFORMATION
  Report Type: 
  Country: None (occurrence: None)
  Receive Date: 20090202
  Receipt Date: 20090202
  Transmission Date: 20090719
  Serious: Yes (Other)
  Sender: FDA-Public Use
  Company Number: None

PATIENT
  Age: 2 Year
  Sex: Male
  Weight: 14.5151 kg

DRUGS (1)
  1. SINGULAIR [Suspect]
     Indication: ASTHMA
     Dosage: 4-MG DAILY PO
     Route: 048
     Dates: start: 20081001, end: 20081210

REACTIONS (15)
  - ABNORMAL BEHAVIOUR [None]
  - ACARODERMATITIS [None]
  - AGGRESSION [None]
  - AGITATION [None]
  - ANGER [None]
  - ANXIETY [None]
  - FEAR [None]
  - ILL-DEFINED DISORDER [None]
  - MIDDLE INSOMNIA [None]
  - MOOD ALTERED [None]
  - NERVOUSNESS [None]
  - PRURITUS [None]
  - RESTLESSNESS [None]
  - SCREAMING [None]
  - URTICARIA [None]
